FAERS Safety Report 5713124-3 (Version None)
Quarter: 2008Q2

REPORT INFORMATION
  Report Type: 
  Country: None (occurrence: None)
  Receive Date: 20080422
  Receipt Date: 20070605
  Transmission Date: 20081010
  Serious: No
  Sender: FDA-Public Use
  Company Number: US-BRISTOL-MYERS SQUIBB COMPANY-13803952

PATIENT
  Age: 75 Year
  Sex: Female

DRUGS (1)
  1. HYDREA [Suspect]
     Indication: THROMBOCYTOPENIA

REACTIONS (1)
  - VISION BLURRED [None]
